FAERS Safety Report 8952898 (Version 1)
Quarter: 2012Q4

REPORT INFORMATION
  Report Type: 
  Country: US (occurrence: US)
  Receive Date: 20121203
  Receipt Date: 20121203
  Transmission Date: 20130627
  Serious: Yes (Hospitalization, Other)
  Sender: FDA-Public Use
  Company Number: CHPA2012US024021

PATIENT
  Age: 49 Year
  Sex: Female

DRUGS (9)
  1. EXCEDRIN EXTRA STRENGTH [Suspect]
     Indication: HEADACHE
     Dosage: 2 DF, as needed
     Route: 048
     Dates: start: 1998, end: 2008
  2. EXCEDRIN EXTRA STRENGTH [Suspect]
     Indication: HEADACHE
     Dosage: 2 DF, as needed
     Route: 048
     Dates: start: 1998, end: 2008
  3. EXCEDRIN MIGRAINE [Suspect]
     Indication: HEADACHE
     Dosage: 2 DF, as needed
     Route: 048
     Dates: start: 1998, end: 2008
  4. EXCEDRIN MIGRAINE [Suspect]
     Indication: HEADACHE
     Dosage: 2 DF, as needed
     Route: 048
     Dates: start: 1998, end: 2008
  5. DRUG THERAPY NOS [Concomitant]
  6. DRUG THERAPY NOS [Concomitant]
     Indication: PAIN IN EXTREMITY
     Dosage: Unk, Unk
     Dates: start: 201209
  7. COUMADIN ^BOOTS^ [Concomitant]
     Indication: ANTICOAGULANT THERAPY
     Route: 048
  8. MULTIVITE//VITAMINS NOS [Concomitant]
  9. ADVIL COLD AND SINUS PLUS [Concomitant]
     Indication: HEADACHE

REACTIONS (5)
  - Leukaemia [Recovered/Resolved]
  - Lower limb fracture [Recovered/Resolved]
  - Contusion [Recovered/Resolved]
  - Fall [Recovered/Resolved]
  - Walking aid user [Not Recovered/Not Resolved]
